FAERS Safety Report 24287088 (Version 1)
Quarter: 2024Q3

REPORT INFORMATION
  Report Type: Spontaneous
  Country: US (occurrence: US)
  Receive Date: 20240905
  Receipt Date: 20240905
  Transmission Date: 20241017
  Serious: Yes (Hospitalization, Other)
  Sender: INCYTE
  Company Number: US-INCYTE CORPORATION-2024IN009263

PATIENT

DRUGS (7)
  1. JAKAFI [Suspect]
     Active Substance: RUXOLITINIB
     Indication: Still^s disease
     Dosage: UNK
     Route: 065
     Dates: start: 202309
  2. JAKAFI [Suspect]
     Active Substance: RUXOLITINIB
     Dosage: 25 BID
     Route: 065
     Dates: start: 202408
  3. MEDROL [Suspect]
     Active Substance: METHYLPREDNISOLONE
     Indication: Still^s disease
     Route: 065
  4. PREDNISONE [Suspect]
     Active Substance: PREDNISONE
     Indication: Still^s disease
     Route: 065
  5. VOCLOSPORIN [Suspect]
     Active Substance: VOCLOSPORIN
     Indication: Still^s disease
     Dosage: UNK
     Route: 065
     Dates: start: 202310
  6. KEVZARA [Concomitant]
     Active Substance: SARILUMAB
     Indication: Still^s disease
     Dosage: UNK
     Route: 065
     Dates: start: 202305, end: 202309
  7. VORICONAZOLE [Concomitant]
     Active Substance: VORICONAZOLE
     Indication: Infection prophylaxis
     Dosage: 25 UNK
     Route: 065

REACTIONS (11)
  - Haemophagocytic lymphohistiocytosis [Unknown]
  - Still^s disease [Unknown]
  - Hypertransaminasaemia [Unknown]
  - Condition aggravated [Unknown]
  - Hallucination [Unknown]
  - Mental status changes [Unknown]
  - Drug hypersensitivity [Unknown]
  - Nausea [Unknown]
  - Vomiting [Unknown]
  - Diarrhoea [Unknown]
  - Off label use [Unknown]

NARRATIVE: CASE EVENT DATE: 20230901
